FAERS Safety Report 4424690-2 (Version None)
Quarter: 2004Q3

REPORT INFORMATION
  Report Type: 
  Country: None (occurrence: None)
  Receive Date: 20040809
  Receipt Date: 20040726
  Transmission Date: 20050211
  Serious: Yes (Hospitalization, Disabling)
  Sender: FDA-Public Use
  Company Number: 03P-062-0217804-00

PATIENT
  Age: 52 Year
  Sex: Male
  Weight: 85 kg

DRUGS (11)
  1. HUMIRA [Suspect]
     Indication: RHEUMATOID ARTHRITIS
     Dosage: 1 IN 2 WK, SUBCUTANEOUS
     Route: 058
     Dates: start: 20030327, end: 20030508
  2. HUMIRA [Suspect]
     Indication: RHEUMATOID ARTHRITIS
     Dosage: 1 IN 2 WK, SUBCUTANEOUS
     Route: 058
     Dates: start: 20030522
  3. METHOTREXATE SODIUM [Concomitant]
  4. LEFLUNOMIDE [Concomitant]
  5. PRED-H [Concomitant]
  6. DICLOFENAC [Concomitant]
  7. ASPIRIN [Concomitant]
  8. CALCIUM [Concomitant]
  9. ERGOCALCIFEROL [Concomitant]
  10. FOLIC ACID [Concomitant]
  11. METOPROLOL [Concomitant]

REACTIONS (4)
  - ANGIONEUROTIC OEDEMA [None]
  - ASTHMA [None]
  - HERPES ZOSTER [None]
  - HYPERSENSITIVITY [None]
